FAERS Safety Report 6027513-3 (Version None)
Quarter: 2009Q1

REPORT INFORMATION
  Report Type: 
  Country: None (occurrence: None)
  Receive Date: 20090105
  Receipt Date: 20081228
  Transmission Date: 20090719
  Serious: Yes (Hospitalization, Other)
  Sender: FDA-Public Use
  Company Number: CN-ROCHE-580356

PATIENT
  Age: 28 Year
  Sex: Female
  Weight: 53 kg

DRUGS (4)
  1. PEGASYS [Suspect]
     Indication: HEPATITIS B
     Route: 058
     Dates: start: 20070401, end: 20080501
  2. PEGASYS [Suspect]
     Route: 058
     Dates: start: 20080501, end: 20080701
  3. PEGASYS [Suspect]
     Route: 058
     Dates: start: 20080701, end: 20080801
  4. ENTECAVIR [Concomitant]
     Indication: HEPATITIS B
     Dosage: THE TRADE NAME WAS REPORTED AS BARACLUDE
     Route: 048

REACTIONS (8)
  - ANAEMIA [None]
  - CONJUNCTIVITIS [None]
  - HEPATITIS B DNA INCREASED [None]
  - LUPUS NEPHRITIS [None]
  - LYMPHADENOPATHY [None]
  - POLYMENORRHOEA [None]
  - SYSTEMIC LUPUS ERYTHEMATOSUS [None]
  - WHITE BLOOD CELL COUNT DECREASED [None]
